FAERS Safety Report 11855326 (Version 1)
Quarter: 2015Q4

REPORT INFORMATION
  Report Type: Spontaneous
  Country: US (occurrence: None)
  Receive Date: 20151218
  Receipt Date: 20151218
  Transmission Date: 20160305
  Serious: No
  Sender: FDA-Public Use
  Company Number: None

PATIENT
  Sex: Male

DRUGS (11)
  1. CAPECITABINE 500 MG TEVA PHARMACEUTICALS USA INC [Suspect]
     Active Substance: CAPECITABINE
     Indication: COLON CANCER
     Route: 048
     Dates: start: 20151026
  2. ENOXAPARIN [Concomitant]
     Active Substance: ENOXAPARIN
  3. HUMIRA [Concomitant]
     Active Substance: ADALIMUMAB
  4. OXYCODONE [Concomitant]
     Active Substance: OXYCODONE
  5. IRON [Concomitant]
     Active Substance: IRON
  6. TAMSULOSIN [Concomitant]
     Active Substance: TAMSULOSIN
  7. CYANOCOBALAM [Concomitant]
  8. HUMIRA [Concomitant]
     Active Substance: ADALIMUMAB
  9. INSULIN SYRG [Concomitant]
  10. OXYCODONE AND ACETAMINOPHEN [Concomitant]
     Active Substance: ACETAMINOPHEN\OXYCODONE\OXYCODONE HYDROCHLORIDE
  11. DELZICOL [Concomitant]
     Active Substance: MESALAMINE

REACTIONS (1)
  - Nausea [None]
